FAERS Safety Report 19951474 (Version 1)
Quarter: 2021Q4

REPORT INFORMATION
  Report Type: Spontaneous
  Country: CN (occurrence: CN)
  Receive Date: 20211013
  Receipt Date: 20211013
  Transmission Date: 20220304
  Serious: Yes (Other)
  Sender: FDA-Public Use
  Company Number: CN-PFIZER INC-202101302046

PATIENT
  Age: 47 Year
  Sex: Male

DRUGS (1)
  1. ZYVOX [Suspect]
     Active Substance: LINEZOLID
     Indication: Intracranial infection
     Dosage: 600 MG, 2X/DAY
     Route: 041
     Dates: start: 20210913, end: 20210918

REACTIONS (1)
  - Drug-induced liver injury [Recovering/Resolving]

NARRATIVE: CASE EVENT DATE: 20210918
